FAERS Safety Report 5573972-X (Version None)
Quarter: 2007Q4

REPORT INFORMATION
  Report Type: 
  Country: None (occurrence: None)
  Receive Date: 20071220
  Receipt Date: 20071217
  Transmission Date: 20080405
  Serious: Yes (Life-Threatening, Hospitalization, Other)
  Sender: FDA-Public Use
  Company Number: US-GDP-07403129

PATIENT
  Sex: Female

DRUGS (3)
  1. CLOBEX   SHAMPOO         (CLOBETASOL PROPIONATE) [Suspect]
     Dosage: TOPICAL
     Route: 061
     Dates: end: 20071024
  2. LIPITOR [Concomitant]
  3. ASPIRIN [Concomitant]

REACTIONS (5)
  - ANGIOEDEMA [None]
  - DIZZINESS [None]
  - DRUG HYPERSENSITIVITY [None]
  - DYSPHAGIA [None]
  - PHARYNGEAL OEDEMA [None]
